FAERS Safety Report 7714571 (Version 2)
Quarter: 2014Q1

REPORT INFORMATION
  Report Type: Spontaneous
  Country: PK (occurrence: PK)
  Receive Date: 20101216
  Receipt Date: 20140122
  Transmission Date: 20141002
  Serious: Yes (Other)
  Sender: FDA-Public Use
  Company Number: PK-B.I. PHARMACEUTICALS,INC./RIDGEFIELD-2010-BP-14387YA

PATIENT
  Age: 54 Year
  Sex: Male
  Weight: 80 kg

DRUGS (8)
  1. TAMSULOSINA [Suspect]
     Indication: BENIGN PROSTATIC HYPERPLASIA
     Dosage: 0.4 MG
     Route: 065
  2. ISOFLURANE [Suspect]
     Indication: ANAESTHESIA
     Dosage: ROUTE: RESPIRATORY, DAILY DOSE: 1%
  3. NITROUS OXIDE [Suspect]
     Indication: ANAESTHESIA
     Dosage: ROUTE: RESPIRATORY
  4. CEFAZOLIN (CEFAZOLIN) [Concomitant]
     Route: 042
  5. THIOPENTONE (THIOPENTAL) [Concomitant]
     Dosage: 5 MG/KG
  6. PETHIDINE (PETHIDINE) [Concomitant]
     Dosage: 1 MG/KG
  7. ATRACURIUM (ATRACURIUM) [Concomitant]
     Dosage: 0.5 MG/KG
  8. LACTATED RINGER (CALCIUM CHLORIDE ANHYDROUS, POTASSIUM CHLORIDE, SODIU [Concomitant]
     Dosage: 1 LITER
     Route: 042

REACTIONS (2)
  - Hypotension [Recovered/Resolved]
  - Drug interaction [Unknown]
